FAERS Safety Report 24167288 (Version 1)
Quarter: 2024Q3

REPORT INFORMATION
  Report Type: Spontaneous
  Country: GB (occurrence: GB)
  Receive Date: 20240802
  Receipt Date: 20240802
  Transmission Date: 20241016
  Serious: Yes (Hospitalization, Other)
  Sender: CSL BEHRING
  Company Number: None

PATIENT
  Age: 32 Year
  Sex: Female

DRUGS (1)
  1. HIZENTRA [Suspect]
     Active Substance: HUMAN IMMUNOGLOBULIN G
     Dosage: NEXT DOSE WAS WEEKEND OF 20/07
     Route: 058
     Dates: start: 20240713

REACTIONS (8)
  - Lung disorder [Not Recovered/Not Resolved]
  - Thrombotic stroke [Unknown]
  - Vomiting [Unknown]
  - Cerebral infarction [Unknown]
  - Brain injury [Unknown]
  - Thrombosis [Unknown]
  - Hypertension [Unknown]
  - Hepatic enzyme abnormal [Unknown]

NARRATIVE: CASE EVENT DATE: 20240723
